FAERS Safety Report 8171162-8 (Version None)
Quarter: 2012Q1

REPORT INFORMATION
  Report Type: 
  Country: None (occurrence: None)
  Receive Date: 20120228
  Receipt Date: 20111116
  Transmission Date: 20120608
  Serious: No
  Sender: FDA-Public Use
  Company Number: US-BRISTOL-MYERS SQUIBB COMPANY-16233694

PATIENT
  Sex: Female

DRUGS (1)
  1. ONGLYZA [Suspect]
     Dosage: STARTED WITH 2.5MG.

REACTIONS (1)
  - DIZZINESS [None]
